FAERS Safety Report 11682348 (Version 1)
Quarter: 2015Q4

REPORT INFORMATION
  Report Type: Spontaneous
  Country: FR (occurrence: FR)
  Receive Date: 20151029
  Receipt Date: 20151029
  Transmission Date: 20160304
  Serious: Yes (Other)
  Sender: FDA-Public Use
  Company Number: FR-ABBVIE-15P-056-1489690-00

PATIENT
  Age: 26 Year
  Sex: Female

DRUGS (3)
  1. DEPAKINE CHRONO [Suspect]
     Active Substance: VALPROATE SODIUM
     Indication: AFFECTIVE DISORDER
     Route: 048
     Dates: start: 20150404
  2. DEPAKINE CHRONO [Suspect]
     Active Substance: VALPROATE SODIUM
     Route: 048
  3. DEPAKINE CHRONO [Suspect]
     Active Substance: VALPROATE SODIUM
     Route: 048
     Dates: end: 20150925

REACTIONS (9)
  - Tremor [Unknown]
  - Decreased appetite [Unknown]
  - Pyrexia [Unknown]
  - Nausea [Unknown]
  - Amenorrhoea [Unknown]
  - Food intolerance [Unknown]
  - Vertigo [Unknown]
  - Nightmare [Unknown]
  - Insomnia [Unknown]

NARRATIVE: CASE EVENT DATE: 201509
